FAERS Safety Report 12839250 (Version 1)
Quarter: 2016Q4

REPORT INFORMATION
  Report Type: Spontaneous
  Country: US (occurrence: US)
  Receive Date: 20161010
  Receipt Date: 20161010
  Transmission Date: 20170207
  Serious: Yes (Hospitalization)
  Sender: FDA-Public Use
  Company Number: None

PATIENT
  Age: 56 Year
  Sex: Male
  Weight: 97 kg

DRUGS (2)
  1. HARVONI [Suspect]
     Active Substance: LEDIPASVIR\SOFOSBUVIR
     Indication: HEPATIC CIRRHOSIS
     Dates: start: 20160815, end: 20161009
  2. HARVONI [Suspect]
     Active Substance: LEDIPASVIR\SOFOSBUVIR
     Indication: HEPATITIS C
     Dates: start: 20160815, end: 20161009

REACTIONS (4)
  - Blood fibrinogen decreased [None]
  - Coagulopathy [None]
  - Soft tissue haemorrhage [None]
  - Muscle haemorrhage [None]

NARRATIVE: CASE EVENT DATE: 20161003
